FAERS Safety Report 8807457 (Version 3)
Quarter: 2012Q4

REPORT INFORMATION
  Report Type: 
  Country: US (occurrence: US)
  Receive Date: 20120925
  Receipt Date: 20121009
  Transmission Date: 20130627
  Serious: No
  Sender: FDA-Public Use
  Company Number: US-ASTRAZENECA-2012SE72942

PATIENT
  Sex: Female

DRUGS (3)
  1. SYMBICORT PMDI [Suspect]
     Indication: ASTHMA
     Dosage: 160/4.5 MCG, BID
     Route: 055
  2. SYMBICORT PMDI [Suspect]
     Indication: ASTHMA
     Dosage: 8 PUFFS THREE TIMES A DAY
     Route: 055
  3. SYMBICORT PMDI [Suspect]
     Indication: ASTHMA
     Dosage: 4 TIMES, 8 PUFFS
     Route: 055

REACTIONS (4)
  - Asthma [Unknown]
  - Insomnia [Unknown]
  - Drug dose omission [Unknown]
  - Intentional drug misuse [Unknown]
